FAERS Safety Report 9658023 (Version 1)
Quarter: 2013Q4

REPORT INFORMATION
  Report Type: Spontaneous
  Country: US (occurrence: US)
  Receive Date: 20131030
  Receipt Date: 20131030
  Transmission Date: 20140711
  Serious: Yes (Other)
  Sender: FDA-Public Use
  Company Number: US-B.I. PHARMACEUTICALS,INC./RIDGEFIELD-2013-BI-34180BP

PATIENT
  Age: 79 Year
  Sex: Male

DRUGS (7)
  1. TRADJENTA [Suspect]
     Indication: TYPE 2 DIABETES MELLITUS
     Dosage: 5 MG
     Route: 048
     Dates: start: 20130521, end: 20131017
  2. AMARYL [Concomitant]
     Indication: TYPE 2 DIABETES MELLITUS
  3. ARICEPT [Concomitant]
     Indication: DEPRESSION
  4. HYZAAR [Concomitant]
     Indication: HYPERTENSION
  5. TOPROL [Concomitant]
     Indication: HYPERTENSION
  6. ZOLOFT [Concomitant]
     Indication: DEPRESSION
  7. ZANTAC [Concomitant]
     Indication: GASTROOESOPHAGEAL REFLUX DISEASE

REACTIONS (1)
  - Pancreatitis [Recovered/Resolved]
